FAERS Safety Report 9625799 (Version 2)
Quarter: 2013Q4

REPORT INFORMATION
  Report Type: Not Available
  Country: IT (occurrence: IT)
  Receive Date: 20131016
  Receipt Date: 20131227
  Transmission Date: 20140711
  Serious: Yes (Death)
  Sender: FDA-Public Use
  Company Number: IT-ASTELLAS-2013EU008761

PATIENT
  Sex: Female

DRUGS (1)
  1. MYCAMINE [Suspect]
     Indication: INFECTION
     Dosage: 100 MG/DAY, UNKNOWN/D
     Route: 042

REACTIONS (1)
  - Renal failure acute [Fatal]
